FAERS Safety Report 18393207 (Version 1)
Quarter: 2020Q4

REPORT INFORMATION
  Report Type: Spontaneous
  Country: CN (occurrence: CN)
  Receive Date: 20201016
  Receipt Date: 20201016
  Transmission Date: 20210114
  Serious: Yes (Disabling)
  Sender: FDA-Public Use
  Company Number: CN-PFIZER INC-2020399098

PATIENT
  Age: 33 Year
  Sex: Male
  Weight: 60 kg

DRUGS (8)
  1. ALPRAZOLAM. [Concomitant]
     Active Substance: ALPRAZOLAM
     Indication: SLEEP DISORDER
     Dosage: UNK
  2. ALPRAZOLAM. [Concomitant]
     Active Substance: ALPRAZOLAM
     Dosage: 0.4 MG, 1X/DAY
     Route: 048
     Dates: start: 20200922, end: 20200926
  3. CLONAZEPAM. [Concomitant]
     Active Substance: CLONAZEPAM
     Dosage: 4 MG, 1X/DAY
     Route: 048
     Dates: start: 202009
  4. CLONAZEPAM. [Concomitant]
     Active Substance: CLONAZEPAM
     Indication: SLEEP DISORDER
     Dosage: UNK
  5. ALPRAZOLAM. [Concomitant]
     Active Substance: ALPRAZOLAM
     Dosage: 0.4 MG, 3X/DAY
     Route: 048
     Dates: start: 202009
  6. LYRICA [Suspect]
     Active Substance: PREGABALIN
     Indication: SPHENOPALATINE NEURALGIA
     Dosage: 75 MG, 2X/DAY
     Route: 048
     Dates: start: 20200922, end: 20200924
  7. CLONAZEPAM. [Concomitant]
     Active Substance: CLONAZEPAM
     Dosage: 4 MG, 1X/DAY
     Route: 048
     Dates: start: 20200922, end: 20200926
  8. OXCARBAZEPINE. [Suspect]
     Active Substance: OXCARBAZEPINE
     Indication: SPHENOPALATINE NEURALGIA
     Dosage: 0.3 G, 2X/DAY
     Route: 048
     Dates: start: 20200922, end: 20200924

REACTIONS (6)
  - Asthenia [Unknown]
  - Fall [Unknown]
  - Dizziness [Unknown]
  - Lip haemorrhage [Unknown]
  - Contusion [Unknown]
  - Skin disorder [Unknown]

NARRATIVE: CASE EVENT DATE: 20200926
